FAERS Safety Report 13632140 (Version 1)
Quarter: 2017Q2

REPORT INFORMATION
  Report Type: Spontaneous
  Country: US (occurrence: US)
  Receive Date: 20170531
  Receipt Date: 20170531
  Transmission Date: 20170830
  Serious: No
  Sender: FDA-Public Use
  Company Number: US-ASTELLAS-1442108

PATIENT
  Age: 75 Year
  Sex: Male
  Weight: 173 kg

DRUGS (10)
  1. AVASTIN [Suspect]
     Active Substance: BEVACIZUMAB
     Indication: BRAIN NEOPLASM MALIGNANT
     Dosage: TWO WEEK INTERVAL THEN FOUR WEEK INTERVAL
     Route: 065
     Dates: start: 20120815
  2. COMBIGAN [Concomitant]
     Active Substance: BRIMONIDINE TARTRATE\TIMOLOL MALEATE
     Indication: GLAUCOMA
     Dosage: 4-5 DROPS
     Route: 031
     Dates: start: 20121002
  3. TEMODAR [Concomitant]
     Active Substance: TEMOZOLOMIDE
     Route: 048
     Dates: start: 20121111, end: 20140303
  4. AVASTIN [Suspect]
     Active Substance: BEVACIZUMAB
     Route: 042
     Dates: start: 201409
  5. ERLOTINIB [Suspect]
     Active Substance: ERLOTINIB
     Indication: PRODUCT USED FOR UNKNOWN INDICATION
     Route: 065
  6. AMLODIPINE BESYLATE. [Concomitant]
     Active Substance: AMLODIPINE BESYLATE
     Indication: HYPERTENSION
     Route: 065
  7. FLOMAX [Concomitant]
     Active Substance: TAMSULOSIN HYDROCHLORIDE
     Indication: BENIGN PROSTATIC HYPERPLASIA
     Route: 048
     Dates: start: 20121002
  8. NORVASC [Concomitant]
     Active Substance: AMLODIPINE BESYLATE
     Route: 048
     Dates: start: 20120818
  9. AVASTIN [Suspect]
     Active Substance: BEVACIZUMAB
     Indication: GLIOBLASTOMA
     Dosage: TWO WEEK INTERVAL THEN FOUR WEEK INTERVAL
     Route: 042
     Dates: start: 2012
  10. LUMIGAN [Concomitant]
     Active Substance: BIMATOPROST
     Indication: GLAUCOMA
     Dosage: 4-5 DROPS
     Route: 031
     Dates: start: 20121002

REACTIONS (12)
  - Paraesthesia [Not Recovered/Not Resolved]
  - Arthropathy [Not Recovered/Not Resolved]
  - Pain in extremity [Not Recovered/Not Resolved]
  - Pollakiuria [Not Recovered/Not Resolved]
  - Temperature intolerance [Unknown]
  - Myalgia [Not Recovered/Not Resolved]
  - Amnesia [Unknown]
  - Inguinal hernia [Not Recovered/Not Resolved]
  - Peripheral swelling [Not Recovered/Not Resolved]
  - Arthralgia [Unknown]
  - Groin pain [Not Recovered/Not Resolved]
  - Constipation [Unknown]

NARRATIVE: CASE EVENT DATE: 20140212
